FAERS Safety Report 18320946 (Version 1)
Quarter: 2020Q3

REPORT INFORMATION
  Report Type: Spontaneous
  Country: US (occurrence: US)
  Receive Date: 20200929
  Receipt Date: 20200929
  Transmission Date: 20201103
  Serious: No
  Sender: FDA-Public Use
  Company Number: US-BION-008292

PATIENT
  Age: 87 Year
  Sex: Male

DRUGS (1)
  1. IMODIUM A?D [Suspect]
     Active Substance: LOPERAMIDE HYDROCHLORIDE
     Indication: DIARRHOEA
     Dosage: RECEIVED 1 AT 3 AM, SECOND AT 8 AM AND THIRD AT 10:30 AM

REACTIONS (1)
  - Incorrect dose administered [Not Recovered/Not Resolved]
